FAERS Safety Report 23524598 (Version 6)
Quarter: 2024Q2

REPORT INFORMATION
  Report Type: Report from Study
  Country: US (occurrence: US)
  Receive Date: 20240215
  Receipt Date: 20240629
  Transmission Date: 20240716
  Serious: Yes (Other)
  Sender: FDA-Public Use
  Company Number: US-ABBVIE-5547239

PATIENT
  Sex: Female
  Weight: 129 kg

DRUGS (27)
  1. RINVOQ [Suspect]
     Active Substance: UPADACITINIB
     Indication: Ankylosing spondylitis
     Route: 048
     Dates: start: 20220912, end: 20240114
  2. RINVOQ [Suspect]
     Active Substance: UPADACITINIB
     Indication: Ankylosing spondylitis
     Dosage: 1 TABLET IN THE MORNING
     Route: 048
     Dates: start: 20240228
  3. RINVOQ [Suspect]
     Active Substance: UPADACITINIB
     Indication: Ankylosing spondylitis
     Route: 048
  4. RINVOQ [Suspect]
     Active Substance: UPADACITINIB
     Indication: Ankylosing spondylitis
     Route: 048
  5. RINVOQ [Suspect]
     Active Substance: UPADACITINIB
     Indication: Ankylosing spondylitis
     Route: 048
  6. VISTARIL [Concomitant]
     Active Substance: HYDROXYZINE PAMOATE
     Indication: Product used for unknown indication
     Dosage: TIME INTERVAL: AS NECESSARY: FORM STRENGTH: 25MG?FREQUENCY TEXT: AS NEEDED
     Route: 048
  7. CELEBREX [Concomitant]
     Active Substance: CELECOXIB
     Indication: Pain
     Dosage: FORM STRENGTH: 200 MG,?TAKE 1 CAPSULE BY MOUTH ONCE DAILY AS NEEDED?FOR MILD PAIN OR MODERATE PAI...
     Route: 048
  8. METHOTREXATE [Concomitant]
     Active Substance: METHOTREXATE
     Indication: Product used for unknown indication
     Dosage: FORM STRENGTH: 2.5 MG,?TAKE 8 TABLETS (20 MG TOTAL) BY MOUTH ONCE A WEEK
     Route: 048
  9. PANTOPRAZOLE [Concomitant]
     Active Substance: PANTOPRAZOLE
     Indication: Product used for unknown indication
     Dosage: FORM STRENGTH: 40 MG,?TAKE 1 TABLET BY MOUTH ONCE DAILY STRENGTH: 40 MG
     Route: 048
  10. NORVASC [Concomitant]
     Active Substance: AMLODIPINE BESYLATE
     Indication: Hypertension
     Dosage: FORM STRENGTH: 10 MG,?TAKE 1 TABLET BY MOUTH ONCE DAILY FOR HIGH?BLOOD PRESSURE
     Route: 048
  11. TYLENOL [Concomitant]
     Active Substance: ACETAMINOPHEN
     Indication: Pain
     Dosage: FORM STRENGTH: 500 MG,?TAKE 2 TABLETS (1,000 MG TOTAL) BY MOUTH EVERY 6 (SIX)?HOURS AS NEEDED FOR...
     Route: 048
  12. LORATADINE [Concomitant]
     Active Substance: LORATADINE
     Indication: Product used for unknown indication
     Route: 048
  13. FOLVITE [Concomitant]
     Active Substance: FOLIC ACID
     Indication: Product used for unknown indication
     Dosage: FORM STRENGTH: 1MG,?TAKE 1 TABLET (1 MG TOTAL) BY MOUTH DAILY.
     Route: 048
  14. CYMBALTA [Concomitant]
     Active Substance: DULOXETINE HYDROCHLORIDE
     Indication: Product used for unknown indication
     Dosage: FORM STRENGTH: 60 MG,?TAKE 30 MG BY MOUTH IN THE MORNING
     Route: 048
     Dates: start: 20230526
  15. DICYCLOMINE [Concomitant]
     Active Substance: DICYCLOMINE HYDROCHLORIDE
     Indication: Product used for unknown indication
     Dosage: FORM STRENGTH:10 MILLIGRAM
     Route: 048
  16. DICYCLOMINE [Concomitant]
     Active Substance: DICYCLOMINE HYDROCHLORIDE
     Indication: Product used for unknown indication
     Dosage: FORM STRENGTH: 20 MILLIGRAM
     Route: 048
  17. CLARITIN [Concomitant]
     Active Substance: LORATADINE
     Indication: Product used for unknown indication
     Dosage: FORM STRENGTH: 10 MG,?TAKE 1 TABLET (10 MG TOTAL) BY MOUTH DAILY
     Route: 048
  18. BENTYL [Concomitant]
     Active Substance: DICYCLOMINE HYDROCHLORIDE
     Indication: Diarrhoea
     Dosage: FORM STRENGTH: 20 MG,?TAKE 0.5 TABLETS (10 MG TOTAL) BY MOUTH 4 (FOUR) TIMES?A DAY AS NEEDED (CRA...
     Route: 048
  19. BENTYL [Concomitant]
     Active Substance: DICYCLOMINE HYDROCHLORIDE
     Indication: Diarrhoea
     Dosage: FORM STRENGTH: 10MG,?TAKE 1 CAPSULE BY MOUTH 4 TIMES DAILY AS?NEEDED FOR DIARRHEA OR CRAMPING
     Route: 048
  20. ERGOCALCIFEROL [Concomitant]
     Active Substance: ERGOCALCIFEROL
     Indication: Product used for unknown indication
     Dosage: FORM STRENGTH: 1250 MICROGRAMS,?TAKE 1 CAPSULE (50,000 UNITS TOTAL) BY MOUTH ONCE A?WEEK.
     Route: 048
  21. FLONASE [Concomitant]
     Active Substance: FLUTICASONE PROPIONATE
     Indication: Product used for unknown indication
     Dosage: 50 MCG/ACTUATION NASAL SPRAY,?ADMINISTER 1 SPRAY INTO EACH NOSTRIL DAILY
  22. TEMOVATE [Concomitant]
     Active Substance: CLOBETASOL PROPIONATE
     Indication: Rash
     Dosage: FORM STRENGTH: 0.05%,?APPLY 1 APPLICATION TOPICALLY 2 (TWO) TIMES A DAY AS?NEEDED (RASH) FOR UP T...
  23. MELATONIN [Concomitant]
     Active Substance: MELATONIN
     Indication: Product used for unknown indication
     Dosage: TIME INTERVAL: AS NECESSARY: TAKE 1 TABLET (3 MG TOTAL) BY MOUTH NIGHTLY AS?NEEDED.
     Route: 048
  24. PEPCID [Concomitant]
     Active Substance: FAMOTIDINE
     Indication: Product used for unknown indication
     Dosage: FORM STRENGTH: 40 MG?FREQUENCY TEXT: NIGHTLY
     Route: 048
  25. ACETAMINOPHEN [Concomitant]
     Active Substance: ACETAMINOPHEN
     Indication: Pain
     Dosage: FORM STRENGTH: 500 MILLIGRAM
     Route: 048
  26. HYDRODIURIL [Concomitant]
     Active Substance: HYDROCHLOROTHIAZIDE
     Indication: Product used for unknown indication
     Dosage: FORM STRENGTH: 25 MG,?TAKEL1 TABLET (25 MG TOTAL) BY MOUTH IN THE MORNING.
     Route: 048
  27. COZAAR [Concomitant]
     Active Substance: LOSARTAN POTASSIUM
     Indication: Product used for unknown indication
     Dosage: FORM STRENGTH: 50 MG,?TAKE 1 TABLET BY MOUTH IN THE MORNING
     Route: 048

REACTIONS (12)
  - Carpal tunnel syndrome [Recovering/Resolving]
  - Inflammation [Recovering/Resolving]
  - Fatigue [Not Recovered/Not Resolved]
  - Cataract [Unknown]
  - Dry eye [Unknown]
  - Uterine leiomyoma [Unknown]
  - Therapeutic product effect decreased [Not Recovered/Not Resolved]
  - Gait disturbance [Unknown]
  - Uterine dilation and curettage [Recovered/Resolved]
  - Fatigue [Recovered/Resolved]
  - Musculoskeletal stiffness [Not Recovered/Not Resolved]
  - Pain [Not Recovered/Not Resolved]
